FAERS Safety Report 7107411-4 (Version None)
Quarter: 2010Q4

REPORT INFORMATION
  Report Type: 
  Country: None (occurrence: None)
  Receive Date: 20101112
  Receipt Date: 20101112
  Transmission Date: 20110411
  Serious: No
  Sender: FDA-Public Use
  Company Number: None

PATIENT
  Sex: Female
  Weight: 63.5036 kg

DRUGS (2)
  1. CARISOPRODOL [Suspect]
     Indication: ANXIETY
     Dosage: 350MG 3 TIMES A DAY PO
     Route: 048
  2. CARISOPRODOL [Suspect]
     Indication: INJURY
     Dosage: 350MG 3 TIMES A DAY PO
     Route: 048

REACTIONS (2)
  - DRUG INEFFECTIVE [None]
  - PRODUCT SUBSTITUTION ISSUE [None]
